FAERS Safety Report 14322992 (Version 1)
Quarter: 2017Q4

REPORT INFORMATION
  Report Type: Spontaneous
  Country: US (occurrence: US)
  Receive Date: 20171226
  Receipt Date: 20171226
  Transmission Date: 20180321
  Serious: Yes (Death)
  Sender: FDA-Public Use
  Company Number: US-INSYS THERAPEUTICS, INC-INS201712-000738

PATIENT
  Age: 35 Year
  Sex: Male

DRUGS (7)
  1. FENTANYL. [Suspect]
     Active Substance: FENTANYL
     Indication: COMPLETED SUICIDE
     Route: 048
     Dates: start: 2016
  2. HYDROXYZINE [Suspect]
     Active Substance: HYDROXYZINE HYDROCHLORIDE
     Indication: COMPLETED SUICIDE
     Route: 048
     Dates: start: 2016
  3. OLANZAPINE. [Suspect]
     Active Substance: OLANZAPINE
     Indication: COMPLETED SUICIDE
     Route: 048
     Dates: start: 2016
  4. DIPHENHYDRAMINE. [Suspect]
     Active Substance: DIPHENHYDRAMINE
     Indication: COMPLETED SUICIDE
     Route: 048
     Dates: start: 2016
  5. METHAMPHETAMINE [Suspect]
     Active Substance: METHAMPHETAMINE
     Indication: COMPLETED SUICIDE
     Route: 048
     Dates: start: 2016
  6. BUPROPION. [Suspect]
     Active Substance: BUPROPION
     Indication: COMPLETED SUICIDE
     Route: 048
     Dates: start: 2016
  7. LEVETIRACETAM. [Suspect]
     Active Substance: LEVETIRACETAM
     Indication: COMPLETED SUICIDE
     Route: 048
     Dates: start: 2016

REACTIONS (2)
  - Incorrect route of drug administration [Unknown]
  - Completed suicide [Fatal]

NARRATIVE: CASE EVENT DATE: 2016
